FAERS Safety Report 18972237 (Version 1)
Quarter: 2021Q1

REPORT INFORMATION
  Report Type: Spontaneous
  Country: US (occurrence: US)
  Receive Date: 20210305
  Receipt Date: 20210305
  Transmission Date: 20210420
  Serious: No
  Sender: FDA-Public Use
  Company Number: US-CIPLA LTD.-2021US00874

PATIENT

DRUGS (6)
  1. RETROVIR [Suspect]
     Active Substance: ZIDOVUDINE
     Indication: HIV INFECTION
     Dosage: 2 MG/KG/HR (COURSE 1)
     Route: 042
     Dates: start: 20200605, end: 20200606
  2. EMTRICITABINE/TENOFOVIR [Suspect]
     Active Substance: EMTRICITABINE\TENOFOVIR
     Indication: HIV INFECTION
     Dosage: 1 DOSAGE FORM, QD (TAB/CAPS) (COURSE 1)
     Route: 048
     Dates: start: 20191114
  3. RETROVIR [Suspect]
     Active Substance: ZIDOVUDINE
     Dosage: 1 MG/KG/HR (COURSE 2)
     Route: 042
     Dates: start: 20200605, end: 20200606
  4. RITONAVIR. [Suspect]
     Active Substance: RITONAVIR
     Indication: HIV INFECTION
     Dosage: 1 DOSAGE FORM, QD (TAB/CAPS) (COURSE1)
     Route: 048
     Dates: start: 20191114
  5. TRIUMEQ [Suspect]
     Active Substance: ABACAVIR SULFATE\DOLUTEGRAVIR SODIUM\LAMIVUDINE
     Indication: HIV INFECTION
     Dosage: 1 DOSAGE FORM, QD (COURSE 1)
     Route: 048
     Dates: end: 20191114
  6. ATAZANAVIR. [Suspect]
     Active Substance: ATAZANAVIR
     Indication: HIV INFECTION
     Dosage: 1 DOSAGE FORM, QD (TAB/CAP) (COURCE 1)
     Route: 048
     Dates: start: 20191114

REACTIONS (2)
  - Exposure during pregnancy [Unknown]
  - No adverse event [Unknown]
